FAERS Safety Report 5809906-X (Version None)
Quarter: 2008Q3

REPORT INFORMATION
  Report Type: 
  Country: None (occurrence: None)
  Receive Date: 20080715
  Receipt Date: 20080714
  Transmission Date: 20090109
  Serious: Yes (Other)
  Sender: FDA-Public Use
  Company Number: JP-BRISTOL-MYERS SQUIBB COMPANY-14254569

PATIENT
  Age: 67 Year
  Sex: Male

DRUGS (7)
  1. TAXOL [Suspect]
     Indication: LUNG NEOPLASM MALIGNANT
     Dosage: THERAPY STARTED ON 13-MAY-08. THERAPY DURATION 5 DAYS. WITHDRAWN ON 24-JUN-2008
     Route: 041
     Dates: start: 20080617, end: 20080617
  2. CARBOPLATIN [Suspect]
     Indication: LUNG NEOPLASM MALIGNANT
     Dosage: INITIAL DOSE WAS ON 13-MAY-2008
     Route: 041
     Dates: start: 20080621, end: 20080621
  3. WARFARIN SODIUM [Concomitant]
     Route: 048
  4. BAKTAR [Concomitant]
     Route: 048
  5. FAMOTIDINE [Concomitant]
     Route: 048
  6. DECADRON [Concomitant]
     Route: 042
  7. HERBESSER [Concomitant]
     Route: 048

REACTIONS (1)
  - CYSTITIS HAEMORRHAGIC [None]
